FAERS Safety Report 5171406-0 (Version None)
Quarter: 2006Q4

REPORT INFORMATION
  Report Type: 
  Country: None (occurrence: None)
  Receive Date: 20061213
  Receipt Date: 20060329
  Transmission Date: 20070319
  Serious: Yes (Hospitalization)
  Sender: FDA-Public Use
  Company Number: US-AMGEN-US174502

PATIENT
  Sex: Female

DRUGS (11)
  1. ENBREL [Suspect]
     Indication: RHEUMATOID ARTHRITIS
     Dates: start: 20051115, end: 20060227
  2. BONIVA [Suspect]
     Indication: OSTEOPOROSIS
     Route: 048
     Dates: start: 20051115
  3. XOPENEX [Concomitant]
  4. ADVAIR DISKUS 100/50 [Concomitant]
  5. BECLOMETHASONE DIPROPIONATE [Concomitant]
  6. PREDNISONE TAB [Concomitant]
  7. NORVASC [Concomitant]
  8. NEXIUM [Concomitant]
  9. VIACTIVE [Concomitant]
  10. CALCIUM [Concomitant]
  11. GLUCOSAMINE [Concomitant]

REACTIONS (1)
  - BRONCHITIS [None]
